FAERS Safety Report 5601276-5 (Version None)
Quarter: 2008Q1

REPORT INFORMATION
  Report Type: 
  Country: None (occurrence: None)
  Receive Date: 20080124
  Receipt Date: 20080117
  Transmission Date: 20080703
  Serious: Yes (Hospitalization, Other)
  Sender: FDA-Public Use
  Company Number: A0704973A

PATIENT

DRUGS (3)
  1. LAMICTAL [Suspect]
     Dosage: 100MGD PER DAY
     Route: 048
  2. AMBIEN [Suspect]
  3. EFFEXOR [Suspect]
     Indication: ANXIETY

REACTIONS (13)
  - ABASIA [None]
  - ADVERSE EVENT [None]
  - BACK INJURY [None]
  - DEPRESSED LEVEL OF CONSCIOUSNESS [None]
  - DRUG INTERACTION [None]
  - DYSURIA [None]
  - IMMOBILE [None]
  - INFREQUENT BOWEL MOVEMENTS [None]
  - INSOMNIA [None]
  - INTERVERTEBRAL DISC PROTRUSION [None]
  - NERVE INJURY [None]
  - PAIN [None]
  - TREATMENT NONCOMPLIANCE [None]
